FAERS Safety Report 18944280 (Version 14)
Quarter: 2021Q3

REPORT INFORMATION
  Report Type: Spontaneous
  Country: CA (occurrence: CA)
  Receive Date: 20210226
  Receipt Date: 20210915
  Transmission Date: 20211014
  Serious: Yes (Hospitalization, Other)
  Sender: FDA-Public Use
  Company Number: CA-CELLTRION INC.-2021CA001528

PATIENT

DRUGS (18)
  1. INFLECTRA [Suspect]
     Active Substance: INFLIXIMAB-DYYB
     Dosage: 500 MG (INDUCTION WEEK 2)
     Route: 042
     Dates: start: 20190522, end: 20190522
  2. CHOLESTYRAMINE. [Concomitant]
     Active Substance: CHOLESTYRAMINE
     Dosage: 1 DF, 4 G (GRAMS) POWER PACK QID (4XDAY) IF NEEDED
  3. METHOTREXATE. [Concomitant]
     Active Substance: METHOTREXATE
     Dosage: 1 DF, WEEKLY (UNK DOSE)
     Route: 065
     Dates: start: 2018
  4. URSODIOL. [Concomitant]
     Active Substance: URSODIOL
     Dosage: UNK
  5. CODEINE [Concomitant]
     Active Substance: CODEINE
     Dosage: 2 DF (TABLET), AS NEEDED (2?3 TIMES PER DAY)
     Route: 065
  6. MAGNESIUM [Concomitant]
     Active Substance: MAGNESIUM
     Dosage: UNK
  7. POTASSIUM [Concomitant]
     Active Substance: POTASSIUM
     Dosage: 1 DF (UNK DOSE)
  8. CODEINE [Concomitant]
     Active Substance: CODEINE
     Dosage: 1 DF (LIQUID), AS NEEDED (15?30 MG TID)
     Route: 065
  9. INFLECTRA [Suspect]
     Active Substance: INFLIXIMAB-DYYB
     Dosage: 10 MG/KG RE?LOAD AT 0, 2, 6 WEEKS THEN EVERY 4 WEEKS
     Route: 042
     Dates: start: 20210211
  10. PANTOLOC [PANTOPRAZOLE] [Concomitant]
     Active Substance: PANTOPRAZOLE SODIUM
     Dosage: UNK
  11. INFLECTRA [Suspect]
     Active Substance: INFLIXIMAB-DYYB
     Indication: CROHN^S DISEASE
     Dosage: 500 MG (INDUCTION WEEK 0)
     Route: 042
     Dates: start: 20190425
  12. INFLECTRA [Suspect]
     Active Substance: INFLIXIMAB-DYYB
     Dosage: 500 MG (INDUCTION WEEK 6)
     Route: 042
     Dates: start: 20190620, end: 20190620
  13. DESIPRAMINE [Concomitant]
     Active Substance: DESIPRAMINE
     Dosage: UNK
  14. METHOTREXATE. [Concomitant]
     Active Substance: METHOTREXATE
     Dosage: 1 DF
  15. INFLECTRA [Suspect]
     Active Substance: INFLIXIMAB-DYYB
     Dosage: 500 MG EVERY 8 WEEKS
     Route: 042
  16. INFLECTRA [Suspect]
     Active Substance: INFLIXIMAB-DYYB
     Dosage: 10 MG/KG RE?LOAD AT 0, 2, 6 WEEKS THEN EVERY 4 WEEKS
     Route: 042
     Dates: start: 20210401
  17. INFLECTRA [Suspect]
     Active Substance: INFLIXIMAB-DYYB
     Dosage: 10 MG/KG RE?LOAD AT 0, 2, 6 WEEKS THEN EVERY 4 WEEKS
     Route: 042
     Dates: start: 20210429, end: 20210429
  18. IMODIUM [Concomitant]
     Active Substance: LOPERAMIDE HYDROCHLORIDE
     Dosage: 6 DF, 1X/DAY (6 TABLETS A DAY)

REACTIONS (19)
  - Weight fluctuation [Unknown]
  - Off label use [Unknown]
  - Illness [Unknown]
  - Pyrexia [Unknown]
  - Hypertension [Unknown]
  - Post procedural infection [Unknown]
  - Product dose omission issue [Unknown]
  - Pharyngitis streptococcal [Not Recovered/Not Resolved]
  - Intentional product use issue [Unknown]
  - Treatment noncompliance [Unknown]
  - Condition aggravated [Not Recovered/Not Resolved]
  - Off label use [Unknown]
  - Lethargy [Not Recovered/Not Resolved]
  - Extrasystoles [Not Recovered/Not Resolved]
  - Nephrolithiasis [Unknown]
  - Drug ineffective [Not Recovered/Not Resolved]
  - Blood pressure fluctuation [Unknown]
  - Weight decreased [Not Recovered/Not Resolved]
  - Diarrhoea [Not Recovered/Not Resolved]

NARRATIVE: CASE EVENT DATE: 2021
